FAERS Safety Report 13219490 (Version 2)
Quarter: 2017Q1

REPORT INFORMATION
  Report Type: Spontaneous
  Country: FR (occurrence: FR)
  Receive Date: 20170210
  Receipt Date: 20170310
  Transmission Date: 20170428
  Serious: Yes (Other)
  Sender: FDA-Public Use
  Company Number: FR-ASTRAZENECA-2017SE14315

PATIENT
  Age: 22093 Day
  Sex: Female
  Weight: 57 kg

DRUGS (1)
  1. LYNPARZA [Suspect]
     Active Substance: OLAPARIB
     Indication: OVARIAN CANCER
     Dosage: FIRST INTAKE OF 200 MG
     Route: 048
     Dates: start: 20161212

REACTIONS (3)
  - Dermatitis allergic [Recovered/Resolved]
  - Pain in extremity [Unknown]
  - Off label use [Recovered/Resolved]

NARRATIVE: CASE EVENT DATE: 20161212
